FAERS Safety Report 10014467 (Version 1)
Quarter: 2014Q1

REPORT INFORMATION
  Report Type: Spontaneous
  Country: GB (occurrence: GB)
  Receive Date: 20140317
  Receipt Date: 20140317
  Transmission Date: 20141002
  Serious: Yes (Hospitalization)
  Sender: FDA-Public Use
  Company Number: GB-TARO PHARMACEUTICALS U.S.A., INC-2014SUN00547

PATIENT
  Age: 57 Year
  Sex: Male

DRUGS (17)
  1. WARFARIN [Suspect]
     Indication: DEEP VEIN THROMBOSIS
     Dosage: 10 MG FOR FIRST TWO DAYS
     Route: 065
  2. WARFARIN [Interacting]
     Indication: PULMONARY EMBOLISM
     Dosage: 5 MG ON THE THIRD DAY
     Route: 065
  3. FRAGMIN [Interacting]
     Indication: DEEP VEIN THROMBOSIS
     Dosage: 18000 UNITS, UNK
  4. FRAGMIN [Interacting]
     Indication: PULMONARY EMBOLISM
  5. ASPIRIN [Interacting]
     Indication: PRODUCT USED FOR UNKNOWN INDICATION
     Route: 065
  6. SIMVASTATIN [Interacting]
     Indication: PRODUCT USED FOR UNKNOWN INDICATION
     Route: 065
  7. COAMOXICLAV [Interacting]
     Indication: INFECTIVE EXACERBATION OF CHRONIC OBSTRUCTIVE AIRWAYS DISEASE
     Route: 048
  8. QUININE [Concomitant]
  9. RAMIPRIL [Concomitant]
  10. CARBOCISTEINE [Concomitant]
  11. LEVOTHYROXINE [Concomitant]
  12. DILTIAZIM [Concomitant]
  13. BUDESONIDE [Concomitant]
  14. FORMOTEROL [Concomitant]
  15. TIOTROPIUM [Concomitant]
  16. SALBUTAMOL [Concomitant]
  17. PREDNISOLONE [Concomitant]
     Indication: INFECTIVE EXACERBATION OF CHRONIC OBSTRUCTIVE AIRWAYS DISEASE

REACTIONS (4)
  - Compartment syndrome [Recovered/Resolved]
  - Drug interaction [Recovered/Resolved]
  - Post procedural haemorrhage [Not Recovered/Not Resolved]
  - International normalised ratio increased [Recovered/Resolved]
